FAERS Safety Report 6314470-5 (Version None)
Quarter: 2009Q3

REPORT INFORMATION
  Report Type: 
  Country: None (occurrence: None)
  Receive Date: 20090819
  Receipt Date: 20090811
  Transmission Date: 20100115
  Serious: Yes (Life-Threatening)
  Sender: FDA-Public Use
  Company Number: JP-BRISTOL-MYERS SQUIBB COMPANY-14738058

PATIENT
  Age: 64 Year
  Sex: Female

DRUGS (9)
  1. TAXOL [Suspect]
     Indication: LUNG ADENOCARCINOMA
     Route: 041
  2. PARAPLATIN [Suspect]
     Indication: LUNG ADENOCARCINOMA
     Route: 041
  3. CISPLATIN [Suspect]
     Indication: LUNG ADENOCARCINOMA
     Route: 042
     Dates: start: 20040101
  4. NAVELBINE [Suspect]
     Indication: LUNG ADENOCARCINOMA
     Route: 042
     Dates: start: 20040101
  5. IRESSA [Suspect]
     Indication: LUNG ADENOCARCINOMA
     Route: 048
  6. GEMZAR [Suspect]
     Indication: LUNG ADENOCARCINOMA
     Route: 042
  7. IRINOTECAN HCL [Suspect]
     Indication: LUNG ADENOCARCINOMA
     Route: 042
  8. TAXOTERE [Suspect]
     Indication: LUNG ADENOCARCINOMA
     Route: 042
     Dates: start: 20080601
  9. RADIOTHERAPY [Suspect]

REACTIONS (1)
  - ACUTE MYELOID LEUKAEMIA [None]
